FAERS Safety Report 8051407-5 (Version None)
Quarter: 2012Q1

REPORT INFORMATION
  Report Type: 
  Country: None (occurrence: None)
  Receive Date: 20120117
  Receipt Date: 20120112
  Transmission Date: 20120608
  Serious: Yes (Death)
  Sender: FDA-Public Use
  Company Number: JP-ROCHE-1030042

PATIENT
  Sex: Female

DRUGS (15)
  1. ACTEMRA [Suspect]
     Indication: RHEUMATOID ARTHRITIS
     Route: 041
     Dates: start: 20081101, end: 20081101
  2. ACTEMRA [Suspect]
     Route: 041
     Dates: start: 20090307, end: 20090307
  3. ACTEMRA [Suspect]
     Route: 041
     Dates: start: 20081206, end: 20081206
  4. ACTEMRA [Suspect]
     Route: 041
     Dates: start: 20090606
  5. PREDNISOLONE [Concomitant]
     Route: 048
     Dates: start: 20090207, end: 20090403
  6. ACTEMRA [Suspect]
     Route: 041
     Dates: start: 20090110, end: 20090110
  7. ACTEMRA [Suspect]
     Route: 041
     Dates: start: 20090207, end: 20090207
  8. PREDNISOLONE [Concomitant]
     Route: 048
     Dates: start: 20090606
  9. ACTEMRA [Suspect]
     Route: 041
     Dates: start: 20090404, end: 20090404
  10. PREDNISOLONE [Concomitant]
     Indication: RHEUMATOID ARTHRITIS
     Route: 048
     Dates: end: 20090206
  11. PREDNISOLONE [Concomitant]
     Indication: RHEUMATOID ARTHRITIS
     Route: 048
     Dates: start: 20090404, end: 20090605
  12. ACTEMRA [Suspect]
     Route: 041
     Dates: start: 20090502, end: 20090502
  13. ACTEMRA [Suspect]
     Dosage: DOSAGE IS UNCERTAIN.
     Route: 041
     Dates: end: 20111001
  14. NEORAL [Concomitant]
     Indication: RHEUMATOID ARTHRITIS
     Route: 048
     Dates: end: 20090606
  15. ISONIAZID [Concomitant]
     Indication: TUBERCULOSIS
     Route: 048
     Dates: start: 20080802, end: 20090606

REACTIONS (1)
  - LUNG NEOPLASM MALIGNANT [None]
